FAERS Safety Report 9886190 (Version 1)
Quarter: 2014Q1

REPORT INFORMATION
  Report Type: Spontaneous
  Country: US (occurrence: US)
  Receive Date: 20140210
  Receipt Date: 20140210
  Transmission Date: 20141002
  Serious: No
  Sender: FDA-Public Use
  Company Number: US-ENDO PHARMACEUTICALS INC.-PHEN20130008

PATIENT
  Age: 45 Year
  Sex: Female
  Weight: 78.09 kg

DRUGS (1)
  1. PHENTERMINE HCL TABLETS [Suspect]
     Indication: OVERWEIGHT
     Route: 048
     Dates: start: 201209, end: 201303

REACTIONS (1)
  - Mitral valve incompetence [Not Recovered/Not Resolved]
